FAERS Safety Report 18287572 (Version 1)
Quarter: 2020Q3

REPORT INFORMATION
  Report Type: Spontaneous
  Country: US (occurrence: US)
  Receive Date: 20200921
  Receipt Date: 20200921
  Transmission Date: 20201103
  Serious: Yes (Hospitalization)
  Sender: FDA-Public Use
  Company Number: US-ALEMBIC PHARMACUETICALS LIMITED-2020SCAL000390

PATIENT

DRUGS (18)
  1. QUETIAPINE. [Concomitant]
     Active Substance: QUETIAPINE
     Indication: PSYCHIATRIC SYMPTOM
     Dosage: 200 MILLIGRAM, BID
  2. QUETIAPINE. [Concomitant]
     Active Substance: QUETIAPINE
     Dosage: 400 MILLIGRAM, QD (QHS) AT EVERY NIGHT
  3. CLOBAZAM. [Interacting]
     Active Substance: CLOBAZAM
     Indication: SEIZURE
     Dosage: CLOBAZAM HAD BEEN DECREASED TO 50%
  4. CANNABIDIOL [Interacting]
     Active Substance: CANNABIDIOL
     Indication: BEHAVIOUR DISORDER
     Dosage: 10 MILLIGRAM/KILOGRAM, OD, PER DAY AS PER TITRATION SCHEDULE
  5. CANNABIDIOL [Interacting]
     Active Substance: CANNABIDIOL
     Dosage: 10 MILLIGRAM/KILOGRAM, OD, PER DAY (NEARLY ONE YEAR AFTER ADMISSION, PATIENT CONTINUED ON CBD)
  6. LITHIUM CARBONATE. [Interacting]
     Active Substance: LITHIUM CARBONATE
     Indication: AUTISM SPECTRUM DISORDER
     Dosage: 300 MILLIGRAM, QD (QPM) AT EVERY NIGHT
  7. LITHIUM CARBONATE. [Suspect]
     Active Substance: LITHIUM CARBONATE
     Indication: PSYCHIATRIC SYMPTOM
     Dosage: 600 MILLIGRAM, QD (QAM) AT EVERY MORNING
  8. LITHIUM CARBONATE. [Interacting]
     Active Substance: LITHIUM CARBONATE
     Indication: AGGRESSION
     Dosage: 600 MILLIGRAM, QD (QHS) AT EVERY NIGHT
  9. CANNABIDIOL [Interacting]
     Active Substance: CANNABIDIOL
     Indication: SEIZURE
     Dosage: 5 MILLIGRAM/KILOGRAM, BID PER DAY
  10. FELBAMATE. [Concomitant]
     Active Substance: FELBAMATE
     Indication: LENNOX-GASTAUT SYNDROME
     Dosage: UNK
  11. CLOBAZAM. [Interacting]
     Active Substance: CLOBAZAM
     Dosage: THE PATIENT CONTINUED ON HALF DOSE OF CLOBAZAM NEARLY ONE YEAR AFTER ADMISSION TO THE HOSPITAL
  12. PERPHENAZINE. [Concomitant]
     Active Substance: PERPHENAZINE
     Indication: PSYCHIATRIC SYMPTOM
     Dosage: 8 MILLIGRAM, TID
  13. LITHIUM CARBONATE. [Interacting]
     Active Substance: LITHIUM CARBONATE
     Indication: DEVELOPMENTAL DELAY
  14. FELBAMATE. [Concomitant]
     Active Substance: FELBAMATE
     Indication: SEIZURE
  15. CLOBAZAM. [Interacting]
     Active Substance: CLOBAZAM
     Indication: LENNOX-GASTAUT SYNDROME
     Dosage: DUE TO POTENTIAL INTERACTIONS WITH CLOBAZAM,DOSE WAS SIMULTANEOUSLY DECREASED BY 25%
  16. CANNABIDIOL [Interacting]
     Active Substance: CANNABIDIOL
     Indication: LENNOX-GASTAUT SYNDROME
     Dosage: 5 MILLIGRAM/KILOGRAM, OD, INITIALLY
  17. TRAZODONE [Concomitant]
     Active Substance: TRAZODONE HYDROCHLORIDE
     Indication: PSYCHIATRIC SYMPTOM
     Dosage: 300 MILLIGRAM, QD (QHS) AT EVERY NIGHT
  18. CLONIDINE. [Concomitant]
     Active Substance: CLONIDINE
     Indication: PSYCHIATRIC SYMPTOM
     Dosage: UNK

REACTIONS (12)
  - Somnolence [Recovered/Resolved]
  - Drug interaction [Unknown]
  - Balance disorder [Recovered/Resolved]
  - Ataxia [Recovered/Resolved]
  - Hypersomnia [Recovered/Resolved]
  - Fatigue [Recovered/Resolved]
  - Toxicity to various agents [Recovered/Resolved]
  - Hypophagia [Recovered/Resolved]
  - Mental status changes [Recovered/Resolved]
  - Drug level increased [Recovered/Resolved]
  - Lethargy [Recovered/Resolved]
  - Asthenia [Recovered/Resolved]
